FAERS Safety Report 9268601 (Version 2)
Quarter: 2013Q2

REPORT INFORMATION
  Report Type: Spontaneous
  Country: US (occurrence: US)
  Receive Date: 20130502
  Receipt Date: 20130624
  Transmission Date: 20140414
  Serious: Yes (Hospitalization)
  Sender: FDA-Public Use
  Company Number: US-B.I. PHARMACEUTICALS,INC./RIDGEFIELD-2013-BI-12009BP

PATIENT
  Age: 92 Year
  Sex: Male
  Weight: 74.84 kg

DRUGS (7)
  1. PRADAXA [Suspect]
     Indication: ANTICOAGULANT THERAPY
     Dosage: 150 MG
     Dates: start: 20101221, end: 20120120
  2. PROTONIX [Concomitant]
     Dosage: 40 MG
  3. LASIX [Concomitant]
     Dosage: 40 MG
  4. PREDNISONE [Concomitant]
     Dosage: 5 MG
  5. DIGOXIN [Concomitant]
     Dosage: 125 MCG
  6. LIPITOR [Concomitant]
     Dosage: 10 MG
  7. METOPROLOL [Concomitant]

REACTIONS (2)
  - Gastrointestinal haemorrhage [Unknown]
  - Anaemia [Unknown]
